FAERS Safety Report 5979351-5 (Version None)
Quarter: 2008Q4

REPORT INFORMATION
  Report Type: 
  Country: None (occurrence: None)
  Receive Date: 20081204
  Receipt Date: 20081201
  Transmission Date: 20090506
  Serious: Yes (Hospitalization)
  Sender: FDA-Public Use
  Company Number: BR-ABBOTT-08P-020-0444601-00

PATIENT
  Sex: Female

DRUGS (7)
  1. HUMIRA [Suspect]
     Indication: RHEUMATOID ARTHRITIS
     Route: 058
     Dates: start: 20060401
  2. UNKNOWN SPRAY [Concomitant]
     Indication: BRONCHITIS
     Route: 048
  3. UNKNOWN SYRUP [Concomitant]
     Indication: BRONCHITIS
     Route: 048
  4. UNKNOWN TABLET [Concomitant]
     Indication: BRONCHITIS
     Route: 048
  5. UNKNOWN EYEWASH [Concomitant]
     Indication: GLAUCOMA
     Route: 061
  6. UNKNOWN OINTMENT [Concomitant]
     Indication: GLAUCOMA
     Route: 061
  7. LEFLUNOMIDE [Concomitant]
     Indication: RHEUMATOID ARTHRITIS

REACTIONS (6)
  - FOOT DEFORMITY [None]
  - GAIT DISTURBANCE [None]
  - HAND DEFORMITY [None]
  - MUSCLE DISORDER [None]
  - PNEUMONIA [None]
  - VARICOPHLEBITIS [None]
